FAERS Safety Report 5015372-7 (Version None)
Quarter: 2006Q2

REPORT INFORMATION
  Report Type: 
  Country: None (occurrence: None)
  Receive Date: 20060530
  Receipt Date: 20060530
  Transmission Date: 20061013
  Serious: Yes (Life-Threatening)
  Sender: FDA-Public Use
  Company Number: None

PATIENT
  Age: 49 Year
  Sex: Female

DRUGS (10)
  1. DAPSONE [Suspect]
     Indication: PNEUMOCYSTIS JIROVECI PNEUMONIA
     Dosage: 200 MG PO DAILY
     Route: 048
     Dates: start: 20060301
  2. TESSALON [Concomitant]
  3. FAMVIR [Concomitant]
  4. MAGIC MOUTHWASH [Concomitant]
  5. BENADRYL [Concomitant]
  6. TPN [Concomitant]
  7. ATROVENT [Concomitant]
  8. SOLU-MEDROL [Concomitant]
  9. PROTONIX [Concomitant]
  10. PERCOCET [Concomitant]

REACTIONS (6)
  - BLINDNESS [None]
  - CORNEAL ABRASION [None]
  - ERYTHEMA MULTIFORME [None]
  - SIMILAR REACTION ON PREVIOUS EXPOSURE TO DRUG [None]
  - STEVENS-JOHNSON SYNDROME [None]
  - TOXIC EPIDERMAL NECROLYSIS [None]
